FAERS Safety Report 5730247-3 (Version None)
Quarter: 2008Q2

REPORT INFORMATION
  Report Type: 
  Country: None (occurrence: None)
  Receive Date: 20080430
  Receipt Date: 20080201
  Transmission Date: 20081010
  Serious: No
  Sender: FDA-Public Use
  Company Number: 2008PV034111

PATIENT
  Sex: Female

DRUGS (2)
  1. SYMLIN [Suspect]
     Indication: DIABETES MELLITUS
     Dosage: SC
     Route: 058
     Dates: end: 20080101
  2. SYMLIN [Suspect]
     Indication: DIABETES MELLITUS
     Dosage: 72 MCG;TID;SC
     Route: 058

REACTIONS (3)
  - DRUG PRESCRIBING ERROR [None]
  - HYPOGLYCAEMIA [None]
  - NAUSEA [None]
